FAERS Safety Report 6042949-2 (Version None)
Quarter: 2009Q1

REPORT INFORMATION
  Report Type: 
  Country: None (occurrence: None)
  Receive Date: 20090119
  Receipt Date: 20090114
  Transmission Date: 20090719
  Serious: No
  Sender: FDA-Public Use
  Company Number: US-JNJFOC-20090103164

PATIENT
  Sex: Female
  Weight: 68.04 kg

DRUGS (15)
  1. FENTANYL TRANSDERMAL SYSTEM [Suspect]
     Route: 062
  2. FENTANYL TRANSDERMAL SYSTEM [Suspect]
     Indication: FIBROMYALGIA
     Route: 062
  3. DURAGESIC-100 [Suspect]
     Indication: FIBROMYALGIA
     Route: 062
  4. BUSPAR [Concomitant]
     Indication: CRYING
     Route: 048
  5. CARBIDOPA AND LEVODOPA [Concomitant]
     Indication: RESTLESS LEGS SYNDROME
     Route: 048
  6. LOTREL [Concomitant]
     Indication: HYPERTENSION
     Dosage: 5/20 MG
     Route: 048
  7. TRAZODONE HCL [Concomitant]
     Indication: SLEEP DISORDER THERAPY
     Dosage: 100-200 MG, 1-2  TABLETS EACH NIGHT AS NEEDED
     Route: 048
  8. GLUCOPHAGE [Concomitant]
     Indication: BLOOD GLUCOSE DECREASED
     Route: 048
  9. ALPRAZOLAM [Concomitant]
     Dosage: 2MG/TABLET/1MG/TABLET EACH NIGHT ORAL
     Route: 048
  10. ALPRAZOLAM [Concomitant]
     Indication: NERVOUS SYSTEM DISORDER
     Dosage: 1MG/TABLET/1MG/TABLET FOUR TIMES A DAY/ORAL
     Route: 048
  11. CYMBALTA [Concomitant]
     Indication: DEPRESSION
     Route: 048
  12. METHOCARBAMOL [Concomitant]
     Indication: MUSCLE RELAXANT THERAPY
     Route: 048
  13. ETODOLAC [Concomitant]
     Indication: ARTHRITIS
     Route: 048
  14. ETODOLAC [Concomitant]
     Indication: ANTIINFLAMMATORY THERAPY
     Dosage: 400-800 MG/TABLET/400 MG/1-2 TABLETS AS NEEDED/ORAL
     Route: 048
  15. LORTAB [Concomitant]
     Indication: PAIN
     Route: 048

REACTIONS (4)
  - APPLICATION SITE PRURITUS [None]
  - CHEST PAIN [None]
  - DRUG ADMINISTERED AT INAPPROPRIATE SITE [None]
  - DYSPNOEA [None]
